FAERS Safety Report 9013816 (Version 1)
Quarter: 2013Q1

REPORT INFORMATION
  Report Type: Spontaneous
  Country: CA (occurrence: CA)
  Receive Date: 20130115
  Receipt Date: 20130115
  Transmission Date: 20140127
  Serious: Yes (Disabling)
  Sender: FDA-Public Use
  Company Number: CA-TEVA-380422USA

PATIENT
  Age: 61 Year
  Sex: Male

DRUGS (1)
  1. METOPROLOL [Suspect]
     Dosage: 50 MILLIGRAM DAILY;
     Route: 048

REACTIONS (2)
  - Dental caries [Not Recovered/Not Resolved]
  - Tooth loss [Not Recovered/Not Resolved]
